FAERS Safety Report 10103721 (Version 1)
Quarter: 2014Q2

REPORT INFORMATION
  Report Type: Report from Study
  Country: US (occurrence: US)
  Receive Date: 20140424
  Receipt Date: 20140424
  Transmission Date: 20141212
  Serious: Yes (Death, Hospitalization)
  Sender: FDA-Public Use
  Company Number: US-ABBVIE-14P-163-1227669-00

PATIENT
  Age: 60 Year
  Sex: Female
  Weight: 65.83 kg

DRUGS (17)
  1. HYDROMORPHONE [Concomitant]
     Indication: PRODUCT USED FOR UNKNOWN INDICATION
  2. PRILOSEC [Concomitant]
     Indication: PRODUCT USED FOR UNKNOWN INDICATION
  3. ILANTUS [Concomitant]
     Indication: PRODUCT USED FOR UNKNOWN INDICATION
  4. INSULIN [Concomitant]
     Indication: PRODUCT USED FOR UNKNOWN INDICATION
  5. MICARDIS [Concomitant]
     Indication: PRODUCT USED FOR UNKNOWN INDICATION
  6. PRAVASTATIN [Concomitant]
     Indication: PRODUCT USED FOR UNKNOWN INDICATION
  7. INSULIN [Concomitant]
     Indication: PRODUCT USED FOR UNKNOWN INDICATION
  8. CREON [Suspect]
     Indication: PRODUCT USED FOR UNKNOWN INDICATION
  9. MARINOL [Suspect]
     Indication: NAUSEA
     Dates: start: 201308, end: 2014
  10. ZOFRAN [Suspect]
     Indication: NAUSEA
  11. ATENOLOL [Concomitant]
     Indication: PRODUCT USED FOR UNKNOWN INDICATION
  12. CLONAZEPAM [Concomitant]
     Indication: PRODUCT USED FOR UNKNOWN INDICATION
  13. COUMADIN [Concomitant]
     Indication: PRODUCT USED FOR UNKNOWN INDICATION
  14. AMLODIPINE [Concomitant]
     Indication: PRODUCT USED FOR UNKNOWN INDICATION
  15. ENOXAPARIN [Concomitant]
     Indication: PRODUCT USED FOR UNKNOWN INDICATION
  16. FLUOXETINE [Concomitant]
     Indication: PRODUCT USED FOR UNKNOWN INDICATION
  17. GABAPENTIN [Concomitant]
     Indication: PRODUCT USED FOR UNKNOWN INDICATION

REACTIONS (7)
  - Colon cancer metastatic [Fatal]
  - Headache [Fatal]
  - Abasia [Fatal]
  - Serotonin syndrome [Recovered/Resolved]
  - Hyperhidrosis [Recovered/Resolved]
  - Unevaluable event [Recovered/Resolved]
  - Aphasia [Recovered/Resolved]
